FAERS Safety Report 9892061 (Version 1)
Quarter: 2014Q1

REPORT INFORMATION
  Report Type: Spontaneous
  Country: US (occurrence: US)
  Receive Date: 20140212
  Receipt Date: 20140212
  Transmission Date: 20141002
  Serious: Yes (Other)
  Sender: FDA-Public Use
  Company Number: US-GLAXOSMITHKLINE-A1059845A

PATIENT
  Sex: Female

DRUGS (9)
  1. ADVAIR [Suspect]
     Indication: EMPHYSEMA
     Dosage: 1PUFF PER DAY
     Route: 055
     Dates: start: 2004
  2. SPIRIVA [Concomitant]
  3. OXYGEN [Concomitant]
  4. DALIRESP [Concomitant]
  5. CALCIUM [Concomitant]
  6. AMLODIPINE [Concomitant]
  7. SERTRALINE [Concomitant]
  8. OMEPRAZOLE [Concomitant]
  9. NAPROXEN [Concomitant]

REACTIONS (3)
  - Lung infection [Recovering/Resolving]
  - Cataract [Recovering/Resolving]
  - Bronchitis [Recovering/Resolving]
